FAERS Safety Report 9346058 (Version 10)
Quarter: 2015Q2

REPORT INFORMATION
  Report Type: Spontaneous
  Country: JP (occurrence: JP)
  Receive Date: 20130613
  Receipt Date: 20150531
  Transmission Date: 20150821
  Serious: Yes (Hospitalization, Disabling, Other)
  Sender: FDA-Public Use
  Company Number: JP-SANOFI-AVENTIS-2013SA059616

PATIENT
  Age: 61 Year
  Sex: Male
  Weight: 61 kg

DRUGS (8)
  1. NIFEDIPINE. [Suspect]
     Active Substance: NIFEDIPINE
     Indication: HYPERTENSION
     Route: 065
     Dates: start: 20110801, end: 2013
  2. CALBLOCK [Suspect]
     Active Substance: AZELNIDIPINE
     Indication: HYPERTENSION
     Route: 065
     Dates: start: 20110801, end: 2013
  3. ALFACALCIDOL [Suspect]
     Active Substance: ALFACALCIDOL
     Indication: BONE METABOLISM DISORDER
     Route: 065
     Dates: start: 20110801, end: 2013
  4. CALTAN [Suspect]
     Active Substance: CALCIUM CARBONATE
     Indication: HYPERPHOSPHATAEMIA
     Route: 065
     Dates: start: 20110801, end: 2013
  5. LANSOPRAZOLE. [Suspect]
     Active Substance: LANSOPRAZOLE
     Indication: GASTRIC ULCER
     Route: 065
     Dates: start: 20130128, end: 20130226
  6. DELLEGRA [Suspect]
     Active Substance: FEXOFENADINE HYDROCHLORIDE\PSEUDOEPHEDRINE HYDROCHLORIDE
     Indication: SEASONAL ALLERGY
     Route: 048
     Dates: start: 20130501, end: 20130512
  7. TELMISARTAN. [Suspect]
     Active Substance: TELMISARTAN
     Indication: HYPERTENSION
     Route: 065
     Dates: start: 20110801, end: 2013
  8. FOSRENOL [Suspect]
     Active Substance: LANTHANUM CARBONATE
     Indication: HYPERPHOSPHATAEMIA
     Route: 065
     Dates: start: 20130128, end: 20130226

REACTIONS (11)
  - Incoherent [Recovering/Resolving]
  - Altered state of consciousness [Recovered/Resolved]
  - Toxicity to various agents [Recovering/Resolving]
  - Hallucinations, mixed [Recovering/Resolving]
  - Gait disturbance [Recovering/Resolving]
  - Pyrexia [Unknown]
  - Abnormal behaviour [Unknown]
  - Agitation [Recovering/Resolving]
  - Tremor [Recovering/Resolving]
  - Disorientation [Recovering/Resolving]
  - Insomnia [Recovering/Resolving]

NARRATIVE: CASE EVENT DATE: 201305
